FAERS Safety Report 6494778-3 (Version None)
Quarter: 2009Q4

REPORT INFORMATION
  Report Type: 
  Country: None (occurrence: None)
  Receive Date: 20091214
  Receipt Date: 20090323
  Transmission Date: 20100525
  Serious: No
  Sender: FDA-Public Use
  Company Number: US-BRISTOL-MYERS SQUIBB COMPANY-14558787

PATIENT
  Age: 4 Decade
  Sex: Female

DRUGS (2)
  1. ABILIFY [Suspect]
     Indication: BIPOLAR DISORDER
     Dosage: DOSE REDUCED TO 20MG
     Dates: start: 20081101
  2. LAMICTAL [Concomitant]

REACTIONS (1)
  - WEIGHT INCREASED [None]
